FAERS Safety Report 10004572 (Version 3)
Quarter: 2014Q2

REPORT INFORMATION
  Report Type: Spontaneous
  Country: US (occurrence: US)
  Receive Date: 20140312
  Receipt Date: 20140611
  Transmission Date: 20141212
  Serious: No
  Sender: FDA-Public Use
  Company Number: US-INCYTE CORPORATION-2014IN000098

PATIENT
  Age: 79 Year
  Sex: Male

DRUGS (2)
  1. JAKAFI [Suspect]
     Indication: MYELOFIBROSIS
     Dosage: 20 MG, BID
     Route: 048
     Dates: start: 20120215, end: 20140124
  2. HYDROXYUREA [Concomitant]

REACTIONS (2)
  - White blood cell count increased [Unknown]
  - Drug ineffective [Unknown]
